FAERS Safety Report 16595825 (Version 3)
Quarter: 2020Q4

REPORT INFORMATION
  Report Type: Spontaneous
  Country: DE (occurrence: DE)
  Receive Date: 20190719
  Receipt Date: 20201019
  Transmission Date: 20210113
  Serious: Yes (Death, Hospitalization)
  Sender: FDA-Public Use
  Company Number: DE-TEVA-2019-DE-1077959

PATIENT
  Age: 32 Year
  Sex: Male

DRUGS (7)
  1. LEUCOVORIN. [Suspect]
     Active Substance: LEUCOVORIN
     Dosage: 450 MG, NK; ONGOING CHEMO
  2. MACROGOL [Concomitant]
     Active Substance: POLYETHYLENE GLYCOLS
     Dosage: NK MG, 1-1-0-0
  3. IRINOTECAN [Suspect]
     Active Substance: IRINOTECAN
     Dosage: 360 MG, NK; ONGOING CHEMO
     Route: 065
  4. PANTOPRAZOL [Concomitant]
     Active Substance: PANTOPRAZOLE SODIUM
     Dosage: 40 MG, 0-0-1-0
  5. FLUOROURACIL. [Suspect]
     Active Substance: FLUOROURACIL
     Dosage: 7000 MG, NK; ONGOING CHEMO
     Route: 065
  6. OXALIPLATIN. [Suspect]
     Active Substance: OXALIPLATIN
     Dosage: 180 MG, NK; ONGOING CHEMO
     Route: 065
  7. MAGNESIUM [Concomitant]
     Active Substance: MAGNESIUM
     Dosage: NK MG, 1-0-0-0

REACTIONS (2)
  - Haematochezia [Unknown]
  - Abdominal pain lower [Unknown]
